FAERS Safety Report 24703110 (Version 5)
Quarter: 2025Q3

REPORT INFORMATION
  Report Type: Spontaneous
  Country: GB (occurrence: GB)
  Receive Date: 20241205
  Receipt Date: 20250724
  Transmission Date: 20251021
  Serious: Yes (Hospitalization, Other)
  Sender: PFIZER
  Company Number: GB-LDELTA-2024001210

PATIENT
  Age: 52 Year
  Sex: Female

DRUGS (10)
  1. RITUXIMAB [Suspect]
     Active Substance: RITUXIMAB
     Indication: B-cell lymphoma
     Dates: start: 20240909, end: 202412
  2. VINCRISTINE SULFATE [Suspect]
     Active Substance: VINCRISTINE SULFATE
     Indication: B-cell lymphoma
     Dates: start: 20240903, end: 202412
  3. DOXORUBICIN [Suspect]
     Active Substance: DOXORUBICIN
     Dates: start: 202409, end: 202412
  4. CLOZAPINE [Suspect]
     Active Substance: CLOZAPINE
     Indication: Schizophrenia
     Dosage: 275 MG, 1X/DAY
     Dates: start: 20090202, end: 202502
  5. CLOZAPINE [Suspect]
     Active Substance: CLOZAPINE
     Dates: start: 20250306
  6. CYCLOPHOSPHAMIDE [Suspect]
     Active Substance: CYCLOPHOSPHAMIDE
     Indication: B-cell lymphoma
     Dates: start: 20240903, end: 202412
  7. PREDNISOLONE [Concomitant]
     Active Substance: PREDNISOLONE
     Dates: start: 202409, end: 202412
  8. TAMOXIFEN [Concomitant]
     Active Substance: TAMOXIFEN
     Indication: Breast cancer female
     Dosage: 20 MG, 1X/DAY
  9. ACYCLOVIR [Concomitant]
     Active Substance: ACYCLOVIR
  10. ATOVAQUONE [Concomitant]
     Active Substance: ATOVAQUONE

REACTIONS (10)
  - Malignant neoplasm progression [Not Recovered/Not Resolved]
  - B-cell lymphoma [Not Recovered/Not Resolved]
  - Second primary malignancy [Not Recovered/Not Resolved]
  - Endometrial cancer [Not Recovered/Not Resolved]
  - Faecaloma [Not Recovered/Not Resolved]
  - Uterine mass [Not Recovered/Not Resolved]
  - Neutrophil count decreased [Recovered/Resolved]
  - White blood cell count decreased [Recovered/Resolved]
  - Constipation [Not Recovered/Not Resolved]
  - Off label use [Unknown]

NARRATIVE: CASE EVENT DATE: 20240903
